FAERS Safety Report 6290583-1 (Version None)
Quarter: 2009Q3

REPORT INFORMATION
  Report Type: 
  Country: None (occurrence: None)
  Receive Date: 20090730
  Receipt Date: 20090722
  Transmission Date: 20100115
  Serious: Yes (Hospitalization)
  Sender: FDA-Public Use
  Company Number: FR-JNJFOC-20090707226

PATIENT
  Sex: Female

DRUGS (15)
  1. HALDOL [Suspect]
     Indication: DRUG USE FOR UNKNOWN INDICATION
     Route: 048
  2. HYPNOVEL [Suspect]
     Indication: DRUG USE FOR UNKNOWN INDICATION
     Route: 042
  3. PROPOFOL [Suspect]
     Indication: DRUG USE FOR UNKNOWN INDICATION
     Route: 042
  4. PANTOPRAZOLE SODIUM [Suspect]
     Indication: DRUG USE FOR UNKNOWN INDICATION
     Route: 048
  5. RIVOTRIL [Suspect]
     Indication: DRUG USE FOR UNKNOWN INDICATION
     Route: 048
  6. LASIX [Suspect]
     Indication: DRUG USE FOR UNKNOWN INDICATION
     Route: 042
  7. TRANXENE [Suspect]
     Indication: DRUG USE FOR UNKNOWN INDICATION
     Route: 048
  8. ETOMIDATE [Suspect]
     Indication: DRUG USE FOR UNKNOWN INDICATION
     Route: 042
  9. CELOCURINE [Suspect]
     Indication: DRUG USE FOR UNKNOWN INDICATION
     Route: 065
  10. FENTANYL [Suspect]
     Indication: DRUG USE FOR UNKNOWN INDICATION
     Route: 042
  11. KARDEGIC [Concomitant]
     Route: 065
  12. PROZAC [Concomitant]
     Route: 065
  13. SERESTA [Concomitant]
     Route: 065
  14. IMOVANE [Concomitant]
     Route: 065
  15. SERETIDE [Concomitant]
     Route: 065

REACTIONS (3)
  - ERYTHEMA [None]
  - TOXIC SKIN ERUPTION [None]
  - URTICARIA [None]
